FAERS Safety Report 11258193 (Version 1)
Quarter: 2015Q3

REPORT INFORMATION
  Report Type: Spontaneous
  Country: US (occurrence: None)
  Receive Date: 20150709
  Receipt Date: 20150709
  Transmission Date: 20151125
  Serious: Yes (Death)
  Sender: FDA-Public Use
  Company Number: None

PATIENT
  Age: 69 Year
  Sex: Female

DRUGS (1)
  1. HALOPERIDOL. [Suspect]
     Active Substance: HALOPERIDOL

REACTIONS (11)
  - Cardio-respiratory arrest [None]
  - Abdominal pain [None]
  - Contrast media reaction [None]
  - Drug ineffective [None]
  - Peripheral artery thrombosis [None]
  - Nephropathy [None]
  - Bradycardia [None]
  - Pulseless electrical activity [None]
  - Back pain [None]
  - Confusional state [None]
  - Restlessness [None]

NARRATIVE: CASE EVENT DATE: 20150518
